FAERS Safety Report 21243102 (Version 1)
Quarter: 2022Q3

REPORT INFORMATION
  Report Type: Spontaneous
  Country: SI (occurrence: SI)
  Receive Date: 20220823
  Receipt Date: 20220823
  Transmission Date: 20221026
  Serious: Yes (Life-Threatening, Other)
  Sender: FDA-Public Use
  Company Number: None

PATIENT
  Age: 72 Year
  Sex: Male

DRUGS (14)
  1. NINTEDANIB [Suspect]
     Active Substance: NINTEDANIB
     Indication: Lung adenocarcinoma
     Route: 048
     Dates: start: 20220726, end: 20220818
  2. NINTEDANIB [Suspect]
     Active Substance: NINTEDANIB
     Indication: Metastases to bone
  3. NALOXONE HYDROCHLORIDE\OXYCODONE HYDROCHLORIDE [Concomitant]
     Active Substance: NALOXONE HYDROCHLORIDE\OXYCODONE HYDROCHLORIDE
     Indication: Product used for unknown indication
     Dosage: 2X1; 1 DOSAGE FORM
  4. DUTASTERIDE\TAMSULOSIN [Concomitant]
     Active Substance: DUTASTERIDE\TAMSULOSIN
     Indication: Product used for unknown indication
     Dosage: 1 CAPS IN THE MORNING ;1 DOSAGE FORM
  5. ANALGIN 500 MG [Concomitant]
     Indication: Product used for unknown indication
  6. FRAGMIN [Concomitant]
     Active Substance: DALTEPARIN SODIUM
     Indication: Product used for unknown indication
  7. KALCIJEV KARBONAT [Concomitant]
     Indication: Product used for unknown indication
     Dosage: 1X1 1 DOSAGE FORM
  8. CHOLECALCIFEROL [Concomitant]
     Active Substance: CHOLECALCIFEROL
     Indication: Product used for unknown indication
  9. DOCETAXEL [Concomitant]
     Active Substance: DOCETAXEL
     Indication: Lung adenocarcinoma
     Dosage: STARTED THE SECOND COURSE OF SYSTEMIC ONCOLOGY THERAPY FOR METASTATIC LUNG CANCER
     Dates: start: 20220725
  10. DOCETAXEL [Concomitant]
     Active Substance: DOCETAXEL
     Indication: Metastases to bone
  11. XGEVA [Concomitant]
     Active Substance: DENOSUMAB
     Indication: Product used for unknown indication
     Dosage: 1 DOSAGE FORM
  12. FLONIDAN 10 MG [Concomitant]
     Indication: Product used for unknown indication
     Dosage: 1 TBL IF NECESSARY
  13. LYRICA [Concomitant]
     Active Substance: PREGABALIN
     Indication: Product used for unknown indication
  14. Nolpaza 40 MG [Concomitant]
     Indication: Product used for unknown indication
     Dosage: 1 CAPS IN THE MORNING

REACTIONS (1)
  - Ischaemic stroke [Recovering/Resolving]

NARRATIVE: CASE EVENT DATE: 20220728
